FAERS Safety Report 5818719-4 (Version None)
Quarter: 2008Q3

REPORT INFORMATION
  Report Type: 
  Country: None (occurrence: None)
  Receive Date: 20080717
  Receipt Date: 20080717
  Transmission Date: 20090109
  Serious: Yes (Hospitalization, Other)
  Sender: FDA-Public Use
  Company Number: None

PATIENT
  Age: 67 Year
  Sex: Male
  Weight: 64.4108 kg

DRUGS (1)
  1. ZOCOR [Suspect]
     Indication: CORONARY ARTERIAL STENT INSERTION
     Dosage: 80MG DAILY PO
     Route: 048
     Dates: start: 20080509, end: 20080527

REACTIONS (5)
  - BLOOD CREATINE PHOSPHOKINASE INCREASED [None]
  - FALL [None]
  - HEAD INJURY [None]
  - LOSS OF CONSCIOUSNESS [None]
  - PARALYSIS [None]
